FAERS Safety Report 4369300-8 (Version None)
Quarter: 2004Q2

REPORT INFORMATION
  Report Type: 
  Country: None (occurrence: None)
  Receive Date: 20040602
  Receipt Date: 20040514
  Transmission Date: 20050107
  Serious: Yes (Death, Congenital Anomaly)
  Sender: FDA-Public Use
  Company Number: 2004BL003642

PATIENT
  Sex: Male

DRUGS (3)
  1. MINOXIDIL [Suspect]
  2. TRIMETHOPRIM + SULFAMETHOXAZOLE [Suspect]
  3. ERYTHROMYCIN [Concomitant]

REACTIONS (18)
  - ANAL ATRESIA [None]
  - BLADDER AGENESIS [None]
  - CAUDAL REGRESSION SYNDROME [None]
  - CONGENITAL ABSENCE OF VERTEBRA [None]
  - CONGENITAL GENITAL MALFORMATION MALE [None]
  - CONGENITAL MUSCULOSKELETAL ANOMALY [None]
  - CONGENITAL OESOPHAGEAL ANOMALY [None]
  - DRUG EXPOSURE DURING PREGNANCY [None]
  - FINGER HYPOPLASIA [None]
  - LIMB REDUCTION DEFECT [None]
  - MATERNAL CONDITION AFFECTING FOETUS [None]
  - OESOPHAGEAL ATRESIA [None]
  - OLIGOHYDRAMNIOS [None]
  - PELVIC DEFORMITY [None]
  - RENAL AGENESIS [None]
  - SINGLE UMBILICAL ARTERY [None]
  - SKIN HYPOPLASIA [None]
  - URINARY TRACT MALFORMATION [None]
